FAERS Safety Report 25719686 (Version 1)
Quarter: 2025Q3

REPORT INFORMATION
  Report Type: Report from Study
  Country: US (occurrence: US)
  Receive Date: 20250825
  Receipt Date: 20250825
  Transmission Date: 20251020
  Serious: Yes (Other)
  Sender: ACADIA PHARMACEUTICALS
  Company Number: US-ACADIA PHARMACEUTICALS INC.-ACA-2025-PIM-009396

PATIENT
  Age: 78 Year
  Sex: Male

DRUGS (25)
  1. NUPLAZID [Suspect]
     Active Substance: PIMAVANSERIN TARTRATE
     Indication: Parkinson^s disease
     Dosage: 34 MILLIGRAM, QD
     Route: 048
     Dates: start: 20250725
  2. ATORVASTATIN [Concomitant]
     Active Substance: ATORVASTATIN
  3. CETIRIZINE [Concomitant]
     Active Substance: CETIRIZINE HYDROCHLORIDE
  4. CITALOPRAM [Concomitant]
     Active Substance: CITALOPRAM
  5. CLOPIDOGREL [Concomitant]
     Active Substance: CLOPIDOGREL BISULFATE
  6. CORTIZONE 10 [HYDROCORTISONE] [Concomitant]
  7. DIGOXIN [Concomitant]
     Active Substance: DIGOXIN
  8. ETODOLAC [Concomitant]
     Active Substance: ETODOLAC
  9. FAMOTIDINE [Concomitant]
     Active Substance: FAMOTIDINE
  10. FARXIGA [Concomitant]
     Active Substance: DAPAGLIFLOZIN PROPANEDIOL
  11. FLONASE [Concomitant]
     Active Substance: FLUTICASONE PROPIONATE
  12. FOLIC ACID [Concomitant]
     Active Substance: FOLIC ACID
  13. IPRATROPIUM [Concomitant]
     Active Substance: IPRATROPIUM
  14. IRON [Concomitant]
     Active Substance: IRON
  15. LEVOTHYROXINE [Concomitant]
     Active Substance: LEVOTHYROXINE
  16. MEGESTROL ACETATE [Concomitant]
     Active Substance: MEGESTROL ACETATE
  17. MIDODRINE [Concomitant]
     Active Substance: MIDODRINE
  18. MINOCYCLINE [Concomitant]
     Active Substance: MINOCYCLINE HYDROCHLORIDE
  19. ONDANSETRON [Concomitant]
     Active Substance: ONDANSETRON
  20. PANTOPRAZOLE [Concomitant]
     Active Substance: PANTOPRAZOLE
  21. QUETIAPINE [Concomitant]
     Active Substance: QUETIAPINE
  22. SODIUM CHLORIDE [Concomitant]
     Active Substance: SODIUM CHLORIDE
  23. SOTALOL [Concomitant]
     Active Substance: SOTALOL
  24. TRAMADOL [Concomitant]
     Active Substance: TRAMADOL
  25. VITAMINS NOS [Concomitant]
     Active Substance: VITAMINS

REACTIONS (1)
  - Hallucination [Recovered/Resolved]

NARRATIVE: CASE EVENT DATE: 20250801
